FAERS Safety Report 15995095 (Version 3)
Quarter: 2019Q2

REPORT INFORMATION
  Report Type: Report from Study
  Country: US (occurrence: US)
  Receive Date: 20190222
  Receipt Date: 20190527
  Transmission Date: 20190711
  Serious: Yes (Hospitalization, Other)
  Sender: FDA-Public Use
  Company Number: US-ROCHE-2265188

PATIENT
  Age: 60 Year
  Sex: Female

DRUGS (3)
  1. OCREVUS [Suspect]
     Active Substance: OCRELIZUMAB
     Route: 065
     Dates: start: 20170808
  2. OCREVUS [Suspect]
     Active Substance: OCRELIZUMAB
     Indication: MULTIPLE SCLEROSIS
     Dosage: FIRST HALF DOSE
     Route: 065
     Dates: start: 20170725
  3. OCREVUS [Suspect]
     Active Substance: OCRELIZUMAB
     Indication: PRIMARY PROGRESSIVE MULTIPLE SCLEROSIS
     Route: 065
     Dates: start: 201806

REACTIONS (4)
  - Hip fracture [Recovered/Resolved]
  - Urinary tract infection [Recovered/Resolved]
  - Fall [Unknown]
  - Rib fracture [Recovered/Resolved]

NARRATIVE: CASE EVENT DATE: 20190111
